FAERS Safety Report 15945544 (Version 2)
Quarter: 2019Q1

REPORT INFORMATION
  Report Type: Report from Study
  Country: AR (occurrence: AR)
  Receive Date: 20190211
  Receipt Date: 20190222
  Transmission Date: 20190417
  Serious: No
  Sender: FDA-Public Use
  Company Number: AR-SA-2019SA032355

PATIENT
  Age: 81 Year
  Sex: Male
  Weight: 72 kg

DRUGS (1)
  1. IMIGLUCERASE [Suspect]
     Active Substance: IMIGLUCERASE
     Indication: GAUCHER^S DISEASE
     Dosage: 60 IU, EVERY15 DAYS
     Route: 041

REACTIONS (3)
  - Pyrexia [Not Recovered/Not Resolved]
  - Mood swings [Not Recovered/Not Resolved]
  - Hypertension [Not Recovered/Not Resolved]

NARRATIVE: CASE EVENT DATE: 201811
